FAERS Safety Report 17815892 (Version 1)
Quarter: 2020Q2

REPORT INFORMATION
  Report Type: Spontaneous
  Country: US (occurrence: US)
  Receive Date: 20200522
  Receipt Date: 20200522
  Transmission Date: 20200714
  Serious: Yes (Life-Threatening, Hospitalization)
  Sender: FDA-Public Use
  Company Number: US-BAYER-2020-085199

PATIENT
  Age: 65 Year
  Sex: Male

DRUGS (1)
  1. ACETYLSALICYLIC ACID [Suspect]
     Active Substance: ASPIRIN

REACTIONS (10)
  - Packed red blood cell transfusion [None]
  - Kidney rupture [None]
  - Ureteric anastomosis complication [None]
  - Kidney enlargement [None]
  - Subcapsular renal haematoma [None]
  - Nephrectomy [None]
  - Thrombocytopenia [None]
  - Computerised tomogram kidney abnormal [None]
  - Blood pressure systolic decreased [None]
  - Haemoglobin decreased [None]
